FAERS Safety Report 22980603 (Version 2)
Quarter: 2023Q4

REPORT INFORMATION
  Report Type: Spontaneous
  Country: FR (occurrence: FR)
  Receive Date: 20230925
  Receipt Date: 20231103
  Transmission Date: 20240109
  Serious: Yes (Other)
  Sender: FDA-Public Use
  Company Number: FR-Vifor Pharma-VIT-2023-06963

PATIENT
  Age: 78 Year
  Sex: Male
  Weight: 100 kg

DRUGS (7)
  1. KORSUVA [Suspect]
     Active Substance: DIFELIKEFALIN ACETATE
     Indication: Product used for unknown indication
     Dosage: 1 BOTTLE IV (DIALYSER), FIRST DOSE, (50 MCG), 0.1 MINUTE DURATION
     Route: 042
     Dates: start: 20230905, end: 20230905
  2. KORSUVA [Suspect]
     Active Substance: DIFELIKEFALIN ACETATE
     Dosage: 1 BOTTLE IV (DIALYSER), SECOND DOSE (50 MCG), 0.1 MINUTE DURATION
     Route: 042
     Dates: start: 20230907, end: 20230907
  3. KORSUVA [Suspect]
     Active Substance: DIFELIKEFALIN ACETATE
     Dosage: 1 BOTTLE IV (DIALYSER), THIRD DOSE (50 MCG), 01. MINUTE DURATION
     Route: 042
     Dates: start: 20230909, end: 20230909
  4. MAGNESIUM [Concomitant]
     Active Substance: MAGNESIUM
     Dosage: 1 TAB IN EVENING
     Route: 048
  5. LEVOTHYROXINE SODIUM [Concomitant]
     Active Substance: LEVOTHYROXINE SODIUM
     Dosage: 1 TABLET IN MORNING
     Route: 048
  6. SEVELAMER [Concomitant]
     Active Substance: SEVELAMER
     Dosage: 1 TABLET AT LUNCHTIME, 1 TABLET IN THE EVENING
     Route: 048
  7. BISOPROLOL [Concomitant]
     Active Substance: BISOPROLOL\BISOPROLOL FUMARATE
     Dosage: 1 TABLET IN THE EVENING
     Route: 048

REACTIONS (3)
  - Neuropathy peripheral [Recovered/Resolved]
  - Hypersensitivity [Recovered/Resolved]
  - Burning sensation [Recovered/Resolved]

NARRATIVE: CASE EVENT DATE: 20230907
